FAERS Safety Report 8839909 (Version 1)
Quarter: 2012Q4

REPORT INFORMATION
  Report Type: 
  Country: FR (occurrence: FR)
  Receive Date: 20121015
  Receipt Date: 20121015
  Transmission Date: 20130627
  Serious: Yes (Death, Hospitalization, Other)
  Sender: FDA-Public Use
  Company Number: PHHY2012FR090931

PATIENT
  Age: 55 Year
  Sex: Female

DRUGS (9)
  1. NEORAL [Suspect]
     Dosage: 1 DF, QD
     Dates: start: 201204
  2. EUPANTOL [Concomitant]
  3. ACICLOVIR [Concomitant]
  4. FORTUM [Concomitant]
  5. VANCOMYCIN [Concomitant]
  6. VFEND [Concomitant]
  7. AMIKLIN [Concomitant]
  8. TRIATEC [Concomitant]
  9. BISOCE [Concomitant]

REACTIONS (6)
  - Renal failure [Fatal]
  - Respiratory distress [Fatal]
  - Oliguria [Fatal]
  - Renal tubular necrosis [Unknown]
  - Shock [Unknown]
  - Aplasia [Unknown]
